FAERS Safety Report 7033199-1 (Version None)
Quarter: 2010Q4

REPORT INFORMATION
  Report Type: 
  Country: None (occurrence: None)
  Receive Date: 20101007
  Receipt Date: 20100927
  Transmission Date: 20110411
  Serious: Yes (Life-Threatening, Hospitalization, Other)
  Sender: FDA-Public Use
  Company Number: CA-MERCK-1009USA05188

PATIENT
  Age: 78 Year
  Sex: Male

DRUGS (16)
  1. COZAAR [Suspect]
     Route: 048
  2. ADVIL COLD AND SINUS [Suspect]
     Route: 065
  3. ASPIRIN [Concomitant]
     Route: 048
  4. ATENOLOL [Suspect]
     Route: 048
  5. CLONIDINE [Concomitant]
     Route: 048
  6. CRESTOR [Concomitant]
     Route: 048
  7. DILTIAZEM HYDROCHLORIDE [Concomitant]
     Route: 048
  8. DOCUSATE SODIUM [Concomitant]
     Route: 048
  9. FERROUS GLUCONATE [Concomitant]
     Route: 065
  10. FUROSEMIDE [Concomitant]
     Route: 048
  11. NOVOMIX 30 [Concomitant]
     Route: 065
  12. PREVACID [Concomitant]
     Route: 048
  13. RAMIPRIL [Suspect]
     Route: 048
  14. TRIAZOLAM [Concomitant]
     Route: 048
  15. ATENOLOL [Suspect]
     Route: 065
  16. NOVOLIN 70/30 PENFILL CARTRIDGES [Concomitant]
     Route: 058

REACTIONS (5)
  - BLOOD CREATININE INCREASED [None]
  - BLOOD POTASSIUM INCREASED [None]
  - CARDIAC ARREST [None]
  - DRUG INTERACTION [None]
  - HYPERKALAEMIA [None]
